FAERS Safety Report 9201829 (Version 2)
Quarter: 2013Q3

REPORT INFORMATION
  Report Type: Spontaneous
  Country: BE (occurrence: BE)
  Receive Date: 20130401
  Receipt Date: 20130711
  Transmission Date: 20140515
  Serious: Yes (Other)
  Sender: FDA-Public Use
  Company Number: BE-ROCHE-1207110

PATIENT
  Age: 62 Year
  Sex: Female
  Weight: 54.2 kg

DRUGS (5)
  1. XELODA [Suspect]
     Indication: BREAST CANCER METASTATIC
     Route: 065
     Dates: start: 20130111, end: 20130320
  2. HERCEPTIN [Suspect]
     Indication: BREAST CANCER METASTATIC
     Route: 065
  3. PERTUZUMAB [Suspect]
     Indication: BREAST CANCER METASTATIC
     Route: 065
  4. TAXOL [Suspect]
     Indication: BREAST CANCER METASTATIC
     Route: 065
  5. LAPATINIB [Suspect]
     Indication: BREAST CANCER METASTATIC
     Route: 065
     Dates: start: 20130111, end: 20130320

REACTIONS (2)
  - Hypokalaemia [Recovered/Resolved]
  - Palpitations [Recovered/Resolved]
